FAERS Safety Report 4514180-0 (Version None)
Quarter: 2004Q4

REPORT INFORMATION
  Report Type: 
  Country: None (occurrence: None)
  Receive Date: 20041124
  Receipt Date: 20041116
  Transmission Date: 20050328
  Serious: Yes (Life-Threatening)
  Sender: FDA-Public Use
  Company Number: STA-AE-04-MTX-394

PATIENT
  Age: 55 Year
  Sex: Female

DRUGS (6)
  1. RHEUMATREX [Suspect]
     Indication: RHEUMATOID ARTHRITIS
     Dosage: SEE IMAGE
     Route: 048
  2. METHYCOBAL (MECOBALAMIN) [Concomitant]
  3. PREDNISOLONE [Concomitant]
  4. ALFAROL (ALFACALCIDOL) [Concomitant]
  5. LOXONIN (LOXOPROFEN SODIUM) [Concomitant]
  6. GATER (FAMOTIDINE) [Concomitant]

REACTIONS (2)
  - NEOPLASM MALIGNANT [None]
  - OEDEMA PERIPHERAL [None]
